FAERS Safety Report 9499636 (Version 1)
Quarter: 2013Q3

REPORT INFORMATION
  Report Type: Spontaneous
  Country: US (occurrence: None)
  Receive Date: 20130903
  Receipt Date: 20130903
  Transmission Date: 20140515
  Serious: Yes (Hospitalization)
  Sender: FDA-Public Use
  Company Number: None

PATIENT
  Age: 10 Month
  Sex: Male

DRUGS (1)
  1. KEPPRA [Suspect]
     Dosage: # 300 5CC BID PO
     Route: 048

REACTIONS (2)
  - Drug ineffective [None]
  - Product substitution issue [None]
